FAERS Safety Report 8613239-6 (Version None)
Quarter: 2012Q3

REPORT INFORMATION
  Report Type: 
  Country: None (occurrence: None)
  Receive Date: 20120822
  Receipt Date: 20120802
  Transmission Date: 20120928
  Serious: Yes (Hospitalization)
  Sender: FDA-Public Use
  Company Number: HR-009507513-1208HRV003846

PATIENT

DRUGS (5)
  1. LANITOP [Concomitant]
     Dosage: 0.1 MG, UNK
  2. FUROSEMIDE [Concomitant]
     Dosage: 40 MG, UNK
     Route: 048
  3. ALLOPURINOL [Concomitant]
     Dosage: 100 MG, UNK
     Route: 048
  4. JANUMET 50 MG/1000 MG FILMOM OBLOZENE TABLETE [Suspect]
     Indication: DIABETES MELLITUS
     Dosage: 1 DF, QD
     Route: 048
     Dates: start: 20120528, end: 20120101
  5. REPAGLINIDE [Suspect]
     Indication: DIABETES MELLITUS
     Dosage: 0.5 MG, BID
     Route: 048
     Dates: start: 20120616

REACTIONS (2)
  - SUBCUTANEOUS HAEMATOMA [None]
  - THROMBOCYTOPENIA [None]
